FAERS Safety Report 5473631-8 (Version None)
Quarter: 2007Q3

REPORT INFORMATION
  Report Type: 
  Country: None (occurrence: None)
  Receive Date: 20070831
  Receipt Date: 20070426
  Transmission Date: 20080115
  Serious: No
  Sender: FDA-Public Use
  Company Number: 240565

PATIENT
  Age: 81 Year
  Sex: Female

DRUGS (4)
  1. LUCENTIS [Suspect]
     Indication: DRUG USE FOR UNKNOWN INDICATION
     Dates: start: 20070325
  2. HYDROCHLOROTHIAZIDE [Concomitant]
  3. NORVASC [Concomitant]
  4. ADVAIR DISKUS 100/50 [Concomitant]

REACTIONS (2)
  - EYE PAIN [None]
  - HEADACHE [None]
